FAERS Safety Report 6538055-0 (Version None)
Quarter: 2010Q1

REPORT INFORMATION
  Report Type: 
  Country: None (occurrence: None)
  Receive Date: 20100114
  Receipt Date: 20100105
  Transmission Date: 20100710
  Serious: Yes (Hospitalization)
  Sender: FDA-Public Use
  Company Number: FR-ASTRAZENECA-2010SE00377

PATIENT
  Age: 47 Year
  Sex: Female

DRUGS (5)
  1. NEXIUM [Suspect]
  2. ENBREL [Suspect]
     Indication: ANKYLOSING SPONDYLITIS
     Route: 058
     Dates: start: 20080710, end: 20080724
  3. REMICADE [Suspect]
     Indication: ANKYLOSING SPONDYLITIS
     Route: 042
     Dates: start: 20080810, end: 20081121
  4. PREGABALIN [Concomitant]
     Route: 048
  5. TRAMADOL HYDROCHLORIDE [Concomitant]
     Route: 048

REACTIONS (2)
  - ACNE CYSTIC [None]
  - CONDITION AGGRAVATED [None]
